FAERS Safety Report 11144447 (Version 7)
Quarter: 2015Q4

REPORT INFORMATION
  Report Type: Spontaneous
  Country: US (occurrence: US)
  Receive Date: 20150526
  Receipt Date: 20151209
  Transmission Date: 20160304
  Serious: Yes (Other)
  Sender: FDA-Public Use
  Company Number: US-PFIZER INC-2015147846

PATIENT
  Age: 72 Year
  Sex: Male
  Weight: 74.16 kg

DRUGS (6)
  1. SUTENT [Suspect]
     Active Substance: SUNITINIB MALATE
     Dosage: 37.5 MG, CYCLIC (28 DAYS ON/14 DAYS OFF)
     Dates: start: 20150424
  2. SOLGAR VITAMIN C [Concomitant]
     Dosage: 500 MG, UNK
     Dates: start: 201506
  3. SUTENT [Suspect]
     Active Substance: SUNITINIB MALATE
     Dosage: 37.5 MG, CYCLIC (ONCE DAILY FOR 28 DAYS FOLLOWED BY 14 DAY REST PERIOD)
     Dates: start: 20150827
  4. RAINBOW LIGHT, IRON FREE - JUST ONCE [Concomitant]
     Dosage: UNK
     Dates: start: 201506
  5. SUTENT [Suspect]
     Active Substance: SUNITINIB MALATE
     Indication: RENAL CANCER STAGE IV
     Dosage: 50 MG, CYCLIC (ONCE DAILY, 4 WEEKS ON AND 2 WEEKS OFF)
     Dates: start: 20150423, end: 20150813
  6. ALEVE [Concomitant]
     Active Substance: NAPROXEN SODIUM
     Indication: ARTHRITIS
     Dosage: UNK, 2X/WEEK

REACTIONS (15)
  - Haemorrhoid infection [Unknown]
  - Dysgeusia [Not Recovered/Not Resolved]
  - Skin lesion [Not Recovered/Not Resolved]
  - Thrombocytopenia [Unknown]
  - Hyperaesthesia [Not Recovered/Not Resolved]
  - Disease progression [Unknown]
  - Lacrimation increased [Not Recovered/Not Resolved]
  - Palmar-plantar erythrodysaesthesia syndrome [Not Recovered/Not Resolved]
  - Glossodynia [Not Recovered/Not Resolved]
  - Oral pain [Not Recovered/Not Resolved]
  - Renal cancer stage IV [Unknown]
  - Weight decreased [Unknown]
  - Pain in extremity [Not Recovered/Not Resolved]
  - Dry skin [Not Recovered/Not Resolved]
  - Eye discharge [Not Recovered/Not Resolved]

NARRATIVE: CASE EVENT DATE: 20150514
